FAERS Safety Report 7152869-8 (Version None)
Quarter: 2010Q4

REPORT INFORMATION
  Report Type: 
  Country: None (occurrence: None)
  Receive Date: 20101213
  Receipt Date: 20101208
  Transmission Date: 20110411
  Serious: Yes (Death, Hospitalization)
  Sender: FDA-Public Use
  Company Number: PHFR2010GB00749

PATIENT
  Sex: Female

DRUGS (8)
  1. CLOZARIL [Suspect]
     Indication: SCHIZOPHRENIA
     Dosage: 400 MG, UNK
     Route: 048
     Dates: start: 19920615
  2. CLOZARIL [Suspect]
     Dosage: 300 MG, UNK
     Route: 048
  3. AMISULPRIDE [Concomitant]
     Dosage: 400 MG
     Route: 048
  4. AMISULPRIDE [Concomitant]
     Dosage: 200 MG, UNK
  5. LEVOTHYROXINE SODIUM [Concomitant]
     Dosage: 25 MCG
     Route: 048
  6. PRIADEL [Concomitant]
     Dosage: 800 MG
     Route: 048
  7. VALPROATE SODIUM [Concomitant]
     Dosage: 2500 MG
     Route: 048
  8. LITHIUM [Concomitant]
     Indication: SCHIZOAFFECTIVE DISORDER
     Dosage: 400 MG, UNK
     Route: 048

REACTIONS (9)
  - DEATH [None]
  - DYSPNOEA [None]
  - HYPOXIA [None]
  - LEUKOCYTOSIS [None]
  - LOWER RESPIRATORY TRACT INFECTION [None]
  - NEUTROPHIL COUNT INCREASED [None]
  - PNEUMONIA [None]
  - TRACHEOSTOMY [None]
  - WHITE BLOOD CELL COUNT INCREASED [None]
